FAERS Safety Report 4750028-7 (Version None)
Quarter: 2005Q3

REPORT INFORMATION
  Report Type: 
  Country: None (occurrence: None)
  Receive Date: 20050822
  Receipt Date: 20050808
  Transmission Date: 20060218
  Serious: Yes (Hospitalization)
  Sender: FDA-Public Use
  Company Number: B0390556A

PATIENT
  Age: 68 Year
  Sex: Female

DRUGS (1)
  1. LITHIUM SALT (FORMULATION UNKNOWN) (LITHIUM SALT) [Suspect]
     Indication: DEPRESSION

REACTIONS (10)
  - ACUTE PRERENAL FAILURE [None]
  - DEHYDRATION [None]
  - FOOD POISONING [None]
  - GASTRIC VOLVULUS [None]
  - HIATUS HERNIA [None]
  - HYPERNATRAEMIA [None]
  - NEPHROGENIC DIABETES INSIPIDUS [None]
  - POLYURIA [None]
  - THIRST [None]
  - VOMITING [None]
